FAERS Safety Report 7683344-X (Version None)
Quarter: 2011Q3

REPORT INFORMATION
  Report Type: 
  Country: None (occurrence: None)
  Receive Date: 20110815
  Receipt Date: 20110808
  Transmission Date: 20111222
  Serious: Yes (Hospitalization)
  Sender: FDA-Public Use
  Company Number: US-TEVA-295438USA

PATIENT
  Age: 43 Year
  Sex: Male

DRUGS (2)
  1. TERBINAFINE HCL [Suspect]
     Indication: NAIL INFECTION
  2. RISPERIDONE [Interacting]
     Indication: SCHIZOAFFECTIVE DISORDER

REACTIONS (2)
  - PSYCHIATRIC DECOMPENSATION [None]
  - DRUG INTERACTION [None]
